FAERS Safety Report 8756258 (Version 6)
Quarter: 2013Q4

REPORT INFORMATION
  Report Type: Report from Study
  Country: CA (occurrence: CA)
  Receive Date: 20120828
  Receipt Date: 20131028
  Transmission Date: 20140711
  Serious: Yes (Hospitalization, Other)
  Sender: FDA-Public Use
  Company Number: PHHY2011CA18376

PATIENT
  Sex: Female

DRUGS (7)
  1. CLOZARIL [Suspect]
     Indication: SCHIZOPHRENIA
     Dosage: 300 MG, UNK
     Dates: start: 19970605
  2. CLONAZEPAM [Concomitant]
     Dosage: 2 MG, QHS
  3. ABILIFY [Concomitant]
     Dosage: 20 MG, QD
     Route: 048
  4. ATENOLOL [Concomitant]
     Dosage: 20 MG, QD
  5. OMEPRAZOLE [Concomitant]
     Dosage: 40 MG, QD
  6. CES [Concomitant]
     Dosage: 0.625 MG, QD
  7. ZOPICLONE [Concomitant]
     Dosage: 7.5 MG, QHS

REACTIONS (10)
  - Respiratory failure [Unknown]
  - Anoxia [Unknown]
  - Pancytopenia [Unknown]
  - Pneumonia [Unknown]
  - Splenomegaly [Unknown]
  - Hodgkin^s disease [Unknown]
  - Neoplasm malignant [Unknown]
  - Diarrhoea [Unknown]
  - Gastrointestinal disorder [Unknown]
  - Feeling abnormal [Unknown]
